FAERS Safety Report 5924948-1 (Version None)
Quarter: 2008Q4

REPORT INFORMATION
  Report Type: 
  Country: None (occurrence: None)
  Receive Date: 20081020
  Receipt Date: 20081020
  Transmission Date: 20090506
  Serious: Yes (Life-Threatening, Hospitalization)
  Sender: FDA-Public Use
  Company Number: None

PATIENT
  Age: 65 Year
  Sex: Female
  Weight: 53.5244 kg

DRUGS (1)
  1. AMITIZA [Suspect]
     Indication: CONSTIPATION
     Dosage: 1 CAPSULE TWICE DAILY PO
     Route: 048
     Dates: start: 20080115, end: 20081016

REACTIONS (11)
  - ABDOMINAL DISTENSION [None]
  - CARDIAC ENZYMES INCREASED [None]
  - COLD SWEAT [None]
  - DRUG HYPERSENSITIVITY [None]
  - DRUG INEFFECTIVE [None]
  - DYSPNOEA [None]
  - INSOMNIA [None]
  - PALLOR [None]
  - PRESYNCOPE [None]
  - PULMONARY THROMBOSIS [None]
  - THROMBOSIS [None]
